FAERS Safety Report 25944123 (Version 1)
Quarter: 2025Q4

REPORT INFORMATION
  Report Type: Spontaneous
  Country: EU (occurrence: EU)
  Receive Date: 20251021
  Receipt Date: 20251021
  Transmission Date: 20260118
  Serious: Yes (Life-Threatening, Hospitalization, Other)
  Sender: AUROBINDO
  Company Number: EU-WATSON-2012-06167

PATIENT
  Age: 61 Year
  Sex: Male

DRUGS (16)
  1. LEVOFLOXACIN [Interacting]
     Active Substance: LEVOFLOXACIN
     Indication: Respiratory tract infection
     Dosage: 500 MILLIGRAM, TWO TIMES A DAY
     Route: 048
  2. LEVOFLOXACIN [Interacting]
     Active Substance: LEVOFLOXACIN
     Indication: Bacterial infection
  3. LEVOFLOXACIN [Interacting]
     Active Substance: LEVOFLOXACIN
     Indication: Pyrexia
  4. METFORMIN [Interacting]
     Active Substance: METFORMIN HYDROCHLORIDE
     Indication: Type 2 diabetes mellitus
     Dosage: UNK
     Route: 065
  5. NADROPARIN [Suspect]
     Active Substance: NADROPARIN
     Indication: Anticoagulant therapy
     Dosage: 3800 UNITS DAILY
     Route: 058
  6. NADROPARIN [Suspect]
     Active Substance: NADROPARIN
     Indication: Deep vein thrombosis
     Dosage: 5700 IU/DAY
     Route: 058
  7. HYDROMORPHONE [Interacting]
     Active Substance: HYDROMORPHONE
     Indication: Pain
     Dosage: 16 MG, DAILY
     Route: 048
  8. HYDROMORPHONE [Interacting]
     Active Substance: HYDROMORPHONE
     Indication: Tonsil cancer
  9. GLYBURIDE\METFORMIN HYDROCHLORIDE [Interacting]
     Active Substance: GLYBURIDE\METFORMIN HYDROCHLORIDE
     Indication: Type 2 diabetes mellitus
     Dosage: 2.5MG/METFORMIN 400MG TWICE/DAY
     Route: 048
  10. GLYBURIDE\METFORMIN [Interacting]
     Active Substance: GLYBURIDE\METFORMIN
     Indication: Type 2 diabetes mellitus
     Dosage: 400 MG/ 2.5 MG
     Route: 048
  11. GLYBURIDE [Interacting]
     Active Substance: GLYBURIDE
     Indication: Type 2 diabetes mellitus
     Dosage: UNK
     Route: 048
  12. HYDROMORPHONE [Suspect]
     Active Substance: HYDROMORPHONE
     Indication: Tonsil cancer
     Dosage: 16 MILLIGRAM, ONCE A DAY
     Route: 048
  13. HEPARIN [Concomitant]
     Active Substance: HEPARIN SODIUM
     Indication: Deep vein thrombosis
     Dosage: UNK
     Route: 065
  14. FLUOROURACIL [Concomitant]
     Active Substance: FLUOROURACIL
     Indication: Product used for unknown indication
     Dosage: UNK
     Route: 065
  15. CETUXIMAB [Concomitant]
     Active Substance: CETUXIMAB
     Indication: Product used for unknown indication
     Dosage: UNK
     Route: 065
  16. CISPLATIN [Concomitant]
     Active Substance: CISPLATIN
     Indication: Product used for unknown indication
     Dosage: UNK
     Route: 065

REACTIONS (4)
  - Hypoglycaemia [Recovered/Resolved]
  - Inhibitory drug interaction [Recovering/Resolving]
  - Unresponsive to stimuli [Recovered/Resolved]
  - Drug interaction [Unknown]
